FAERS Safety Report 9372549 (Version 1)
Quarter: 2013Q2

REPORT INFORMATION
  Report Type: Report from Study
  Country: US (occurrence: US)
  Receive Date: 20130627
  Receipt Date: 20130627
  Transmission Date: 20140414
  Serious: Yes (Death)
  Sender: FDA-Public Use
  Company Number: US-MYLANLABS-2013S1001009

PATIENT
  Age: 86 Year
  Sex: Female

DRUGS (6)
  1. CLOZAPINE TABLETS [Suspect]
     Route: 048
     Dates: start: 20111028, end: 20121024
  2. EXELON [Concomitant]
     Dosage: PATCH
  3. LORAZEPAM [Concomitant]
  4. TRAZODONE [Concomitant]
  5. SINEMET [Concomitant]
     Dosage: 25/100
  6. NAMENDA [Concomitant]

REACTIONS (1)
  - Death [Fatal]
